FAERS Safety Report 26172707 (Version 1)
Quarter: 2025Q4

REPORT INFORMATION
  Report Type: Spontaneous
  Country: US (occurrence: US)
  Receive Date: 20251218
  Receipt Date: 20251218
  Transmission Date: 20260118
  Serious: Yes (Other)
  Sender: AUROBINDO
  Company Number: US-AUROBINDO-AUR-APL-2025-052340

PATIENT
  Sex: Female

DRUGS (1)
  1. DEXTROAMPHETAMINE SACCHARATE, AMPHETAMINE ASPARTATE, DEXTROAMPHETAMINE [Suspect]
     Active Substance: AMPHETAMINE ASPARTATE\AMPHETAMINE SULFATE\DEXTROAMPHETAMINE SACCHARATE\DEXTROAMPHETAMINE SULFATE
     Indication: Product used for unknown indication
     Dosage: UNK
     Route: 061

REACTIONS (15)
  - Suicidal ideation [Unknown]
  - Brain fog [Unknown]
  - Disturbance in attention [Unknown]
  - Depressed mood [Unknown]
  - Mood swings [Unknown]
  - Affect lability [Unknown]
  - Tearfulness [Unknown]
  - Anger [Unknown]
  - Hostility [Unknown]
  - Anxiety [Unknown]
  - Headache [Unknown]
  - Impaired work ability [Unknown]
  - Impaired driving ability [Unknown]
  - Drug ineffective [Unknown]
  - Product substitution issue [Unknown]
